FAERS Safety Report 13946378 (Version 1)
Quarter: 2017Q3

REPORT INFORMATION
  Report Type: Spontaneous
  Country: BR (occurrence: BR)
  Receive Date: 20170907
  Receipt Date: 20170907
  Transmission Date: 20171128
  Serious: Yes (Other)
  Sender: FDA-Public Use
  Company Number: BR-AMGEN-BRASP2017132833

PATIENT
  Age: 77 Year
  Sex: Female
  Weight: 80 kg

DRUGS (1)
  1. PROLIA [Suspect]
     Active Substance: DENOSUMAB
     Indication: OSTEOPOROSIS
     Dosage: UNK UNK, Q6MO
     Route: 058
     Dates: start: 2014

REACTIONS (7)
  - Resorption bone increased [Unknown]
  - Application site pain [Unknown]
  - Refusal of treatment by patient [Unknown]
  - Toothache [Recovered/Resolved]
  - Dental cyst [Unknown]
  - Wrong technique in product usage process [Unknown]
  - Tooth injury [Unknown]
